FAERS Safety Report 9294146 (Version 2)
Quarter: 2013Q2

REPORT INFORMATION
  Report Type: Spontaneous
  Country: US (occurrence: None)
  Receive Date: 20130514
  Receipt Date: 20130531
  Transmission Date: 20140414
  Serious: Yes (Other)
  Sender: FDA-Public Use
  Company Number: JPI-P-031541

PATIENT
  Age: 54 Year
  Sex: Female
  Weight: 95.71 kg

DRUGS (4)
  1. XYREM (500 MILLIGRAM/MILLILITERS, SOLUTION) (SODIUM OXYBATE) [Suspect]
     Indication: FIBROMYALGIA
     Dosage: 2 GM SECOND DOSE
     Route: 048
     Dates: start: 20050210
  2. XYREM (500 MILLIGRAM/MILLILITERS, SOLUTION) (SODIUM OXYBATE) [Suspect]
     Indication: SLEEP APNOEA SYNDROME
     Dosage: 2 GM SECOND DOSE
     Route: 048
     Dates: start: 20050210
  3. XYREM (500 MILLIGRAM/MILLILITERS, SOLUTION) (SODIUM OXYBATE) [Suspect]
     Indication: INSOMNIA
     Dosage: 2 GM SECOND DOSE
     Route: 048
     Dates: start: 20050210
  4. ASPIRIN [Concomitant]

REACTIONS (3)
  - Heart rate irregular [None]
  - Chest pain [None]
  - Dyspnoea exertional [None]
